FAERS Safety Report 8252782-9 (Version None)
Quarter: 2012Q2

REPORT INFORMATION
  Report Type: 
  Country: None (occurrence: None)
  Receive Date: 20120402
  Receipt Date: 20111208
  Transmission Date: 20120825
  Serious: No
  Sender: FDA-Public Use
  Company Number: US-ABBOTT-11P-163-0882095-00

PATIENT
  Sex: Male
  Weight: 80.812 kg

DRUGS (1)
  1. ANDROGEL [Suspect]
     Indication: PRODUCT USED FOR UNKNOWN INDICATION
     Route: 061
     Dates: start: 20110727

REACTIONS (2)
  - WEIGHT INCREASED [None]
  - SLEEP APNOEA SYNDROME [None]
